FAERS Safety Report 24381184 (Version 3)
Quarter: 2024Q4

REPORT INFORMATION
  Report Type: Spontaneous
  Country: PT (occurrence: PT)
  Receive Date: 20241001
  Receipt Date: 20241111
  Transmission Date: 20250115
  Serious: Yes (Hospitalization, Other)
  Sender: SANDOZ
  Company Number: PT-EMA-DD-20190508-hv_a-123303

PATIENT
  Age: 71 Year
  Sex: Male

DRUGS (56)
  1. BROMAZEPAM [Suspect]
     Active Substance: BROMAZEPAM
     Indication: Product used for unknown indication
     Dosage: UNK
     Route: 065
  2. BROMAZEPAM [Suspect]
     Active Substance: BROMAZEPAM
     Dosage: UNK
     Route: 065
  3. DABIGATRAN [Suspect]
     Active Substance: DABIGATRAN
     Indication: Product used for unknown indication
     Dosage: 110 MG, 1X/DAY
     Route: 065
  4. DABIGATRAN [Suspect]
     Active Substance: DABIGATRAN
     Dosage: 110 MG, 1X/DAY
     Route: 065
  5. DABIGATRAN [Suspect]
     Active Substance: DABIGATRAN
     Dosage: 220 MG
     Route: 065
  6. DABIGATRAN [Suspect]
     Active Substance: DABIGATRAN
     Dosage: 220 MG
     Route: 065
  7. EZETIMIBE [Suspect]
     Active Substance: EZETIMIBE
     Indication: Product used for unknown indication
     Dosage: 10 MG, 1X/DAY
     Route: 065
  8. EZETIMIBE [Suspect]
     Active Substance: EZETIMIBE
     Dosage: 10 MG, 1X/DAY
     Route: 065
  9. INSULIN GLARGINE [Suspect]
     Active Substance: INSULIN GLARGINE
     Dosage: 26 INTERNATIONAL UNIT, 1/DAY
     Route: 065
  10. INSULIN GLARGINE [Suspect]
     Active Substance: INSULIN GLARGINE
     Dosage: 26 INTERNATIONAL UNIT, 1/DAY
     Route: 065
  11. INSULIN GLARGINE [Suspect]
     Active Substance: INSULIN GLARGINE
     Dosage: 26 INTERNATIONAL UNIT, 1/DAY
     Route: 065
  12. INSULIN GLARGINE [Suspect]
     Active Substance: INSULIN GLARGINE
     Dosage: 26 INTERNATIONAL UNIT, 1/DAY
     Route: 065
  13. INSULIN GLARGINE [Suspect]
     Active Substance: INSULIN GLARGINE
     Indication: Product used for unknown indication
     Dosage: 26 IU, 1X/DAY
     Route: 065
  14. INSULIN LISPRO [Suspect]
     Active Substance: INSULIN LISPRO
     Indication: Drug therapy
     Dosage: UNK
     Route: 065
  15. INSULIN LISPRO [Suspect]
     Active Substance: INSULIN LISPRO
     Indication: Type 2 diabetes mellitus
  16. IRBESARTAN [Suspect]
     Active Substance: IRBESARTAN
     Indication: Product used for unknown indication
     Dosage: 150 MG, QD
     Route: 065
  17. IRBESARTAN [Suspect]
     Active Substance: IRBESARTAN
     Dosage: 150 MG, QD
     Route: 065
  18. IRBESARTAN [Suspect]
     Active Substance: IRBESARTAN
     Dosage: 150 MG, QD
     Route: 065
  19. IRBESARTAN [Suspect]
     Active Substance: IRBESARTAN
     Dosage: 150 MG, QD
     Route: 065
  20. ISOSORBIDE MONONITRATE [Suspect]
     Active Substance: ISOSORBIDE MONONITRATE
     Indication: Product used for unknown indication
     Dosage: 60 MG, 1X/DAY
     Route: 048
  21. ISOSORBIDE MONONITRATE [Suspect]
     Active Substance: ISOSORBIDE MONONITRATE
     Dosage: 60 MILLIGRAM, 1/DAY
     Route: 048
  22. ISOSORBIDE MONONITRATE [Suspect]
     Active Substance: ISOSORBIDE MONONITRATE
     Dosage: 60 MILLIGRAM, 1/DAY
     Route: 048
  23. ISOSORBIDE MONONITRATE [Suspect]
     Active Substance: ISOSORBIDE MONONITRATE
     Dosage: 60 MILLIGRAM, 1/DAY
     Route: 048
  24. ISOSORBIDE MONONITRATE [Suspect]
     Active Substance: ISOSORBIDE MONONITRATE
     Dosage: 60 MILLIGRAM, 1/DAY
     Route: 048
  25. ISOSORBIDE MONONITRATE [Suspect]
     Active Substance: ISOSORBIDE MONONITRATE
     Dosage: 60 MILLIGRAM, 1/DAY
     Route: 048
  26. ISOSORBIDE MONONITRATE [Suspect]
     Active Substance: ISOSORBIDE MONONITRATE
     Dosage: 60 MILLIGRAM, 1/DAY
     Route: 048
  27. ISOSORBIDE MONONITRATE [Suspect]
     Active Substance: ISOSORBIDE MONONITRATE
     Dosage: 60 MILLIGRAM, 1/DAY
     Route: 048
  28. LINAGLIPTIN [Suspect]
     Active Substance: LINAGLIPTIN
     Indication: Product used for unknown indication
     Dosage: UNK
     Route: 065
  29. LINAGLIPTIN [Suspect]
     Active Substance: LINAGLIPTIN
     Dosage: UNK
     Route: 065
  30. LINAGLIPTIN\METFORMIN HYDROCHLORIDE [Suspect]
     Active Substance: LINAGLIPTIN\METFORMIN HYDROCHLORIDE
     Indication: Product used for unknown indication
     Dosage: 2.5 MG/850 MG, 1X/DAY
     Route: 065
  31. METFORMIN HYDROCHLORIDE [Suspect]
     Active Substance: METFORMIN HYDROCHLORIDE
     Dosage: UNK UNK, QD
     Route: 065
  32. METFORMIN HYDROCHLORIDE [Suspect]
     Active Substance: METFORMIN HYDROCHLORIDE
     Dosage: UNK UNK, QD
     Route: 065
  33. METFORMIN HYDROCHLORIDE [Suspect]
     Active Substance: METFORMIN HYDROCHLORIDE
     Indication: Product used for unknown indication
     Dosage: UNK
     Route: 065
  34. METFORMIN HYDROCHLORIDE [Suspect]
     Active Substance: METFORMIN HYDROCHLORIDE
     Dosage: UNK UNK, QD
     Route: 065
  35. METFORMIN HYDROCHLORIDE [Suspect]
     Active Substance: METFORMIN HYDROCHLORIDE
     Dosage: UNK UNK, QD
     Route: 065
  36. RAMIPRIL [Suspect]
     Active Substance: RAMIPRIL
     Indication: Product used for unknown indication
     Dosage: 10 MG, 1X/DAY
     Route: 048
  37. RAMIPRIL [Suspect]
     Active Substance: RAMIPRIL
     Dosage: 10 MILLIGRAM, 1/DAY
     Route: 048
  38. RAMIPRIL [Suspect]
     Active Substance: RAMIPRIL
     Dosage: 10 MILLIGRAM, 1/DAY
     Route: 048
  39. RAMIPRIL [Suspect]
     Active Substance: RAMIPRIL
     Dosage: 10 MILLIGRAM, 1/DAY
     Route: 048
  40. ROSUVASTATIN CALCIUM [Suspect]
     Active Substance: ROSUVASTATIN CALCIUM
     Indication: Product used for unknown indication
     Dosage: 10 MG, QD
     Route: 048
  41. ROSUVASTATIN CALCIUM [Suspect]
     Active Substance: ROSUVASTATIN CALCIUM
     Dosage: 10 MG, QD
     Route: 048
  42. ROSUVASTATIN CALCIUM [Suspect]
     Active Substance: ROSUVASTATIN CALCIUM
     Dosage: 10 MG, QD
     Route: 048
  43. ROSUVASTATIN CALCIUM [Suspect]
     Active Substance: ROSUVASTATIN CALCIUM
     Dosage: 10 MG, QD
     Route: 048
  44. JENTADUETO [Concomitant]
     Active Substance: LINAGLIPTIN\METFORMIN HYDROCHLORIDE
     Indication: Product used for unknown indication
     Dosage: 852.5 MILLIGRAM, 1/DAY
     Route: 065
  45. JENTADUETO [Concomitant]
     Active Substance: LINAGLIPTIN\METFORMIN HYDROCHLORIDE
     Dosage: 852.5 MILLIGRAM, 1/DAY
     Route: 065
  46. SILODOSIN [Concomitant]
     Active Substance: SILODOSIN
     Indication: Product used for unknown indication
     Dosage: 8 MG, QD
     Route: 065
  47. SILODOSIN [Concomitant]
     Active Substance: SILODOSIN
     Dosage: 8 MG, QD
     Route: 065
  48. SILODOSIN [Concomitant]
     Active Substance: SILODOSIN
     Dosage: 8 MG, QD
     Route: 065
  49. SILODOSIN [Concomitant]
     Active Substance: SILODOSIN
     Dosage: 8 MG, QD
     Route: 065
  50. EMPAGLIFLOZIN [Interacting]
     Active Substance: EMPAGLIFLOZIN
     Indication: Type 2 diabetes mellitus
     Dosage: 10 MG, 1X/DAY
     Route: 065
  51. EMPAGLIFLOZIN [Interacting]
     Active Substance: EMPAGLIFLOZIN
     Dosage: 10 MILLIGRAM, 1/DAY
     Route: 065
  52. INDAPAMIDE [Interacting]
     Active Substance: INDAPAMIDE
     Indication: Product used for unknown indication
     Dosage: 1.5 MG, 1X/DAY
     Route: 065
  53. INDAPAMIDE [Interacting]
     Active Substance: INDAPAMIDE
     Dosage: 1.5 MG, 1X/DAY
     Route: 065
  54. JARDIANCE [Interacting]
     Active Substance: EMPAGLIFLOZIN
     Indication: Type 2 diabetes mellitus
     Dosage: 10.000MG QD
     Route: 065
  55. EMPAGLIFLOZIN\METFORMIN HYDROCHLORIDE [Interacting]
     Active Substance: EMPAGLIFLOZIN\METFORMIN HYDROCHLORIDE
     Indication: Product used for unknown indication
     Dosage: UNK
     Route: 065
  56. EMPAGLIFLOZIN\METFORMIN HYDROCHLORIDE [Interacting]
     Active Substance: EMPAGLIFLOZIN\METFORMIN HYDROCHLORIDE
     Dosage: UNK
     Route: 065

REACTIONS (22)
  - Haematocrit increased [Recovered/Resolved]
  - Dehydration [Recovered/Resolved]
  - Mucosal dryness [Recovered/Resolved]
  - Hypovolaemia [Recovered/Resolved]
  - Skin disorder [Recovered/Resolved]
  - Left atrial dilatation [Recovered/Resolved]
  - Hypovolaemia [Recovered/Resolved]
  - Haemoglobin increased [Recovered/Resolved]
  - Syncope [Recovered/Resolved]
  - Acute kidney injury [Recovered/Resolved]
  - Bradycardia [Recovered/Resolved]
  - Arrhythmia [Recovered/Resolved]
  - Presyncope [Recovered/Resolved]
  - Presyncope [Recovered/Resolved]
  - Hypotension [Recovered/Resolved]
  - Atrial fibrillation [Recovered/Resolved]
  - Syncope [Recovered/Resolved]
  - Pulmonary congestion [Unknown]
  - Oedema peripheral [Unknown]
  - Hypovolaemia [Recovered/Resolved]
  - Renal disorder [Unknown]
  - Dizziness [Recovered/Resolved]

NARRATIVE: CASE EVENT DATE: 20180101
